FAERS Safety Report 17210188 (Version 1)
Quarter: 2019Q4

REPORT INFORMATION
  Report Type: Spontaneous
  Country: FR (occurrence: FR)
  Receive Date: 20191227
  Receipt Date: 20191227
  Transmission Date: 20200122
  Serious: Yes (Other)
  Sender: FDA-Public Use
  Company Number: FR-BAUSCH-BL-2019-066436

PATIENT
  Age: 39 Year
  Sex: Female

DRUGS (4)
  1. DEXAMETHASONE. [Suspect]
     Active Substance: DEXAMETHASONE
     Indication: FOOT OPERATION
     Route: 065
     Dates: start: 2018, end: 2018
  2. LIDOCAINE AGUETTANT [Suspect]
     Active Substance: LIDOCAINE
     Indication: FOOT OPERATION
     Route: 065
     Dates: start: 2018, end: 2018
  3. CEFAZOLINE MYLAN [Suspect]
     Active Substance: CEFAZOLIN SODIUM
     Indication: FOOT OPERATION
     Route: 042
     Dates: start: 2018, end: 2018
  4. ROPIVACAINE KABI [Suspect]
     Active Substance: ROPIVACAINE
     Indication: FOOT OPERATION
     Route: 065
     Dates: start: 2018, end: 2018

REACTIONS (1)
  - Rash [Recovered/Resolved]

NARRATIVE: CASE EVENT DATE: 2018
